FAERS Safety Report 23419414 (Version 1)
Quarter: 2024Q1

REPORT INFORMATION
  Report Type: Spontaneous
  Country: US (occurrence: US)
  Receive Date: 20240118
  Receipt Date: 20240118
  Transmission Date: 20240410
  Serious: Yes (Death)
  Sender: FDA-Public Use
  Company Number: US-PFIZER INC-PV202400005808

PATIENT

DRUGS (4)
  1. STERILE WATER [Suspect]
     Active Substance: WATER
     Dosage: UNK
  2. STERILE WATER [Suspect]
     Active Substance: WATER
     Dosage: UNK
  3. TNKASE [Suspect]
     Active Substance: TENECTEPLASE
     Dosage: UNK
  4. TNKASE [Suspect]
     Active Substance: TENECTEPLASE
     Dosage: UNK

REACTIONS (1)
  - Haemorrhage intracranial [Fatal]
